FAERS Safety Report 21435238 (Version 3)
Quarter: 2024Q3

REPORT INFORMATION
  Report Type: Spontaneous
  Country: DE (occurrence: DE)
  Receive Date: 20221010
  Receipt Date: 20240730
  Transmission Date: 20241016
  Serious: Yes (Hospitalization)
  Sender: TEVA
  Company Number: DE-ADRED-08329-01

PATIENT
  Age: 56 Year
  Sex: Male

DRUGS (2)
  1. DOCETAXEL [Suspect]
     Active Substance: DOCETAXEL\DOCETAXEL ANHYDROUS
     Indication: Product used for unknown indication
     Dosage: ACCORDING TO SCHEME
     Route: 065
  2. CYRAMZA [Suspect]
     Active Substance: RAMUCIRUMAB
     Indication: Gastric cancer
     Dosage: ACCORDING TO SCHEME
     Route: 065

REACTIONS (3)
  - General physical health deterioration [Unknown]
  - Diarrhoea [Unknown]
  - Decreased appetite [Unknown]
